FAERS Safety Report 19410928 (Version 1)
Quarter: 2021Q2

REPORT INFORMATION
  Report Type: Spontaneous
  Country: DE (occurrence: DE)
  Receive Date: 20210614
  Receipt Date: 20210614
  Transmission Date: 20210717
  Serious: Yes (Other)
  Sender: FDA-Public Use
  Company Number: DE-ASTRAZENECA-2021A304857

PATIENT
  Sex: Female

DRUGS (1)
  1. OSIMERTINIB. [Suspect]
     Active Substance: OSIMERTINIB
     Dosage: DOSE UNKNOWN
     Route: 048

REACTIONS (5)
  - Nail disorder [Unknown]
  - Dry skin [Unknown]
  - Metastases to central nervous system [Recovered/Resolved]
  - Weight increased [Unknown]
  - Skin irritation [Unknown]
